FAERS Safety Report 6154515-9 (Version None)
Quarter: 2009Q2

REPORT INFORMATION
  Report Type: 
  Country: None (occurrence: None)
  Receive Date: 20090410
  Receipt Date: 20090410
  Transmission Date: 20091009
  Serious: Yes (Hospitalization)
  Sender: FDA-Public Use
  Company Number: None

PATIENT
  Age: 74 Year
  Sex: Male

DRUGS (2)
  1. CLOPIDOGREL [Suspect]
     Indication: STENT PLACEMENT
     Dosage: 75 MG EVERY DAY PO
     Route: 048
     Dates: start: 20060510, end: 20081210
  2. ASPIRIN [Suspect]
     Indication: CARDIAC OPERATION
     Dosage: 81 MG EVERY DAY PO
     Route: 048
     Dates: start: 20051107, end: 20081210

REACTIONS (3)
  - FAECES DISCOLOURED [None]
  - GASTRIC HAEMORRHAGE [None]
  - HAEMATEMESIS [None]
